FAERS Safety Report 15300430 (Version 1)
Quarter: 2018Q3

REPORT INFORMATION
  Report Type: Spontaneous
  Country: US (occurrence: US)
  Receive Date: 20180808
  Receipt Date: 20180808
  Transmission Date: 20181010
  Serious: No
  Sender: FDA-Public Use
  Company Number: None

PATIENT
  Age: 61 Year
  Sex: Female
  Weight: 60.75 kg

DRUGS (10)
  1. BABY ASPIRIN [Concomitant]
     Active Substance: ASPIRIN
  2. VITAMIN E [Concomitant]
     Active Substance: .ALPHA.-TOCOPHEROL
  3. LOSARTAN. [Concomitant]
     Active Substance: LOSARTAN
  4. NIACIN. [Concomitant]
     Active Substance: NIACIN
  5. PREDNISONE. [Suspect]
     Active Substance: PREDNISONE
     Indication: RASH
     Dosage: ?          QUANTITY:4 TABLET(S);?
     Route: 048
  6. VITAMIN B12 [Concomitant]
     Active Substance: CYANOCOBALAMIN
  7. CELEBREX [Concomitant]
     Active Substance: CELECOXIB
  8. ANGELIQ [Concomitant]
     Active Substance: DROSPIRENONE\ESTRADIOL
  9. IPROMISE AND IRESTORE [Concomitant]
  10. MULTIVITAMIN [Concomitant]
     Active Substance: VITAMINS

REACTIONS (5)
  - Blood pressure increased [None]
  - Vomiting [None]
  - Visual impairment [None]
  - Body temperature decreased [None]
  - Nausea [None]

NARRATIVE: CASE EVENT DATE: 20180806
